FAERS Safety Report 17002414 (Version 1)
Quarter: 2019Q4

REPORT INFORMATION
  Report Type: Spontaneous
  Country: US (occurrence: US)
  Receive Date: 20191107
  Receipt Date: 20191107
  Transmission Date: 20200122
  Serious: No
  Sender: FDA-Public Use
  Company Number: US-JNJFOC-20191103827

PATIENT
  Sex: Male
  Weight: 59.02 kg

DRUGS (1)
  1. MENS ROGAINE EXTRA STRENGTH [Suspect]
     Active Substance: MINOXIDIL
     Indication: ALOPECIA
     Route: 061

REACTIONS (4)
  - Application site pruritus [Recovering/Resolving]
  - Inappropriate schedule of product administration [Unknown]
  - Dandruff [Recovering/Resolving]
  - Underdose [Unknown]
